FAERS Safety Report 9473390 (Version 2)
Quarter: 2013Q3

REPORT INFORMATION
  Report Type: Spontaneous
  Country: US (occurrence: US)
  Receive Date: 20130823
  Receipt Date: 20130823
  Transmission Date: 20140515
  Serious: No
  Sender: FDA-Public Use
  Company Number: US-GALDERMA-US-GDP-12414907

PATIENT
  Sex: Male
  Weight: 106 kg

DRUGS (9)
  1. METROGEL (METRONIDAZOLE) GEL, 1% [Suspect]
     Indication: ROSACEA
     Dosage: 1%
     Route: 061
     Dates: start: 201105, end: 20130504
  2. METROGEL (METRONIDAZOLE) GEL, 1% [Suspect]
     Route: 061
     Dates: start: 2009
  3. INSULIN-LEVOMIR [Concomitant]
     Indication: INSULIN-REQUIRING TYPE 2 DIABETES MELLITUS
     Dosage: 10 TO 19 UNITS PER DAY
     Route: 058
     Dates: start: 2010
  4. METFORMIN [Concomitant]
     Indication: INSULIN-REQUIRING TYPE 2 DIABETES MELLITUS
     Route: 048
     Dates: start: 2007
  5. LISINOPRIL [Concomitant]
     Indication: HYPERTENSION
     Route: 048
     Dates: start: 2007
  6. HYDROCHLOROTHIAZIDE [Concomitant]
     Indication: HYPERTENSION
     Route: 048
     Dates: start: 2007
  7. ATENOLOL [Concomitant]
     Indication: HYPERTENSION
     Route: 048
     Dates: start: 2007
  8. GLIPIZIDE [Concomitant]
     Indication: INSULIN-REQUIRING TYPE 2 DIABETES MELLITUS
     Route: 048
     Dates: start: 2007
  9. DIAL SOAP [Concomitant]
     Indication: THERAPEUTIC SKIN CARE TOPICAL
     Route: 061

REACTIONS (8)
  - Swelling face [Recovered/Resolved]
  - Rash pustular [Recovered/Resolved]
  - Skin discolouration [Unknown]
  - Pain of skin [Recovered/Resolved]
  - Erythema [Recovered/Resolved]
  - Condition aggravated [Recovered/Resolved]
  - Off label use [Recovered/Resolved]
  - Expired drug administered [Recovered/Resolved]
